FAERS Safety Report 4951520-2 (Version None)
Quarter: 2006Q1

REPORT INFORMATION
  Report Type: 
  Country: None (occurrence: None)
  Receive Date: 20060317
  Receipt Date: 20060309
  Transmission Date: 20060701
  Serious: Yes (Hospitalization, Other)
  Sender: FDA-Public Use
  Company Number: 2006034566

PATIENT
  Sex: Female

DRUGS (4)
  1. VISTARIL [Suspect]
     Indication: PRURITUS
     Dosage: ORAL
     Route: 048
  2. PHENOBARBITAL TAB [Concomitant]
  3. KLONOPIN [Concomitant]
  4. ALLEGRA-D 12 HOUR [Concomitant]

REACTIONS (6)
  - BRAIN NEOPLASM [None]
  - CONVULSION [None]
  - DRUG INEFFECTIVE [None]
  - HYPOACUSIS [None]
  - LOWER LIMB FRACTURE [None]
  - OSTEOPOROSIS [None]
